FAERS Safety Report 21883368 (Version 1)
Quarter: 2023Q1

REPORT INFORMATION
  Report Type: Report from Study
  Country: US (occurrence: US)
  Receive Date: 20230119
  Receipt Date: 20230119
  Transmission Date: 20230417
  Serious: Yes (Other)
  Sender: FDA-Public Use
  Company Number: US-Accord-270306

PATIENT
  Age: 34 Year
  Sex: Male

DRUGS (2)
  1. CLOZAPINE [Suspect]
     Active Substance: CLOZAPINE
     Indication: Schizophrenia
     Dosage: 300 MG/DAILY (50MG AM AND 250MG PM)
     Route: 048
     Dates: start: 20211029
  2. ATROPINE [Concomitant]
     Active Substance: ATROPINE
     Dosage: DROPS UNDER TONGUE

REACTIONS (2)
  - Neutropenia [Unknown]
  - Tooth abscess [Unknown]

NARRATIVE: CASE EVENT DATE: 20220605
